FAERS Safety Report 4819116-0 (Version None)
Quarter: 2005Q4

REPORT INFORMATION
  Report Type: 
  Country: None (occurrence: None)
  Receive Date: 20051031
  Receipt Date: 20050816
  Transmission Date: 20060501
  Serious: No
  Sender: FDA-Public Use
  Company Number: 2005PV001083

PATIENT
  Age: 69 Year
  Sex: Female
  Weight: 59.0583 kg

DRUGS (6)
  1. SYMLIN [Suspect]
     Indication: DIABETES MELLITUS INSULIN-DEPENDENT
     Dosage: 60 MG; TID; SC
     Route: 058
     Dates: start: 20050715, end: 20050814
  2. HUMALOG [Concomitant]
  3. HYZAAR [Concomitant]
  4. NORVASC [Concomitant]
  5. LIPITOR [Concomitant]
  6. PLAVIX [Concomitant]

REACTIONS (1)
  - DECREASED APPETITE [None]
